FAERS Safety Report 8185054-1 (Version None)
Quarter: 2012Q1

REPORT INFORMATION
  Report Type: 
  Country: None (occurrence: None)
  Receive Date: 20120305
  Receipt Date: 20120301
  Transmission Date: 20120608
  Serious: Yes (Hospitalization)
  Sender: FDA-Public Use
  Company Number: ZA-ABBOTT-12P-143-0908223-00

PATIENT

DRUGS (3)
  1. HUMIRA [Suspect]
     Indication: RHEUMATOID ARTHRITIS
     Route: 058
     Dates: start: 20110819
  2. METHOTREXATE [Concomitant]
     Indication: RHEUMATOID ARTHRITIS
     Dosage: 6 TABLETS DAILY
     Route: 048
     Dates: start: 20101201
  3. PLASMOQUINE [Concomitant]
     Indication: RHEUMATOID ARTHRITIS
     Route: 048
     Dates: start: 20101201

REACTIONS (4)
  - OSTEONECROSIS [None]
  - SYNOVITIS [None]
  - WEIGHT DECREASED [None]
  - EFFUSION [None]
